FAERS Safety Report 5683454-2 (Version None)
Quarter: 2008Q1

REPORT INFORMATION
  Report Type: 
  Country: None (occurrence: None)
  Receive Date: 20080326
  Receipt Date: 20080314
  Transmission Date: 20080703
  Serious: No
  Sender: FDA-Public Use
  Company Number: TPA2008A00331

PATIENT
  Age: 54 Year
  Sex: Female

DRUGS (4)
  1. ACTOPLUS MET [Suspect]
     Indication: TYPE 2 DIABETES MELLITUS
     Dosage: 15 MG/850 MG, 2 IN 1 D, PER ORAL; 15 MG/500 MG, 2 IN 1 D, PER ORAL
     Route: 048
     Dates: start: 20080302, end: 20080313
  2. ACTOPLUS MET [Suspect]
     Indication: TYPE 2 DIABETES MELLITUS
     Dosage: 15 MG/850 MG, 2 IN 1 D, PER ORAL; 15 MG/500 MG, 2 IN 1 D, PER ORAL
     Route: 048
     Dates: start: 20080313
  3. UNKNOWN BLOOD PRESSURE MEDICATIONS (ANTIHYPERTENSIVES) [Concomitant]
  4. UNKNOWN CHOLESTEROL MEDICATIONS(CHOLESTEROL- AND TRIGLYCERIDE REDUCERS [Concomitant]

REACTIONS (3)
  - BLOOD GLUCOSE DECREASED [None]
  - INCORRECT DOSE ADMINISTERED [None]
  - PHARMACEUTICAL PRODUCT COMPLAINT [None]
